FAERS Safety Report 13211491 (Version 1)
Quarter: 2017Q1

REPORT INFORMATION
  Report Type: Spontaneous
  Country: US (occurrence: US)
  Receive Date: 20170210
  Receipt Date: 20170210
  Transmission Date: 20170428
  Serious: No
  Sender: FDA-Public Use
  Company Number: US-GLAXOSMITHKLINE-US2017018358

PATIENT
  Age: 69 Year
  Sex: Female

DRUGS (2)
  1. CLARITIN [Concomitant]
     Active Substance: LORATADINE
     Indication: PRODUCT USED FOR UNKNOWN INDICATION
     Dosage: UNK
  2. FLONASE [Suspect]
     Active Substance: FLUTICASONE PROPIONATE
     Indication: PRODUCT USED FOR UNKNOWN INDICATION
     Dosage: UNK
     Dates: start: 201612, end: 201702

REACTIONS (8)
  - Product quality issue [Unknown]
  - Wheezing [Recovering/Resolving]
  - Inappropriate schedule of drug administration [Unknown]
  - Eye irritation [Recovering/Resolving]
  - Myalgia [Recovering/Resolving]
  - Epistaxis [Recovering/Resolving]
  - Productive cough [Recovering/Resolving]
  - Abdominal pain [Unknown]

NARRATIVE: CASE EVENT DATE: 201701
